FAERS Safety Report 8138767-1 (Version None)
Quarter: 2012Q1

REPORT INFORMATION
  Report Type: 
  Country: None (occurrence: None)
  Receive Date: 20120215
  Receipt Date: 20120210
  Transmission Date: 20120608
  Serious: Yes (Other)
  Sender: FDA-Public Use
  Company Number: JP-GLAXOSMITHKLINE-B0780780A

PATIENT
  Age: 7 Decade
  Sex: Male

DRUGS (1)
  1. LAMIVUDINE (EPIVIR HBV) [Suspect]
     Indication: PRODUCT USED FOR UNKNOWN INDICATION
     Route: 048

REACTIONS (1)
  - SPLENOMEGALY [None]
